FAERS Safety Report 15208018 (Version 3)
Quarter: 2018Q3

REPORT INFORMATION
  Report Type: Spontaneous
  Country: US (occurrence: US)
  Receive Date: 20180727
  Receipt Date: 20180808
  Transmission Date: 20181010
  Serious: Yes (Hospitalization, Other)
  Sender: FDA-Public Use
  Company Number: US-PFIZER INC-2018301524

PATIENT
  Age: 65 Year
  Sex: Female

DRUGS (1)
  1. METHOTREXATE SODIUM. [Suspect]
     Active Substance: METHOTREXATE SODIUM
     Indication: RHEUMATOID ARTHRITIS
     Dosage: UNK, DAILY (UNINTENTIONALLY TOOK MEDICATION DAILY RATHER THAN WEEKLY)

REACTIONS (6)
  - Mucosal inflammation [Unknown]
  - Pancytopenia [Recovered/Resolved]
  - Febrile neutropenia [Recovered/Resolved]
  - Epidermal necrosis [Unknown]
  - Incorrect dose administered [Unknown]
  - Toxicity to various agents [Unknown]
